FAERS Safety Report 8303414-2 (Version None)
Quarter: 2012Q2

REPORT INFORMATION
  Report Type: 
  Country: None (occurrence: None)
  Receive Date: 20120423
  Receipt Date: 20120418
  Transmission Date: 20120825
  Serious: Yes (Other)
  Sender: FDA-Public Use
  Company Number: US-PFIZER INC-2012096710

PATIENT
  Sex: Female
  Weight: 64.399 kg

DRUGS (2)
  1. GABAPENTIN [Suspect]
     Dosage: 400 MG DAILY
     Route: 048
  2. GABAPENTIN [Suspect]
     Indication: CONVULSION
     Dosage: 300 MG, 3X/DAY
     Route: 048
     Dates: start: 20100101

REACTIONS (5)
  - ENERGY INCREASED [None]
  - OEDEMA PERIPHERAL [None]
  - CONVULSION [None]
  - GAIT DISTURBANCE [None]
  - WEIGHT INCREASED [None]
